FAERS Safety Report 4368665-0 (Version None)
Quarter: 2004Q2

REPORT INFORMATION
  Report Type: 
  Country: None (occurrence: None)
  Receive Date: 20040602
  Receipt Date: 20040519
  Transmission Date: 20050107
  Serious: Yes (Other)
  Sender: FDA-Public Use
  Company Number: 200410339BNE

PATIENT
  Age: 51 Year
  Sex: Female
  Weight: 63 kg

DRUGS (2)
  1. CIPROFLOXACIN [Suspect]
     Indication: BRONCHIECTASIS
     Dosage: 500 MG, BID; ORAL
     Route: 048
     Dates: start: 20030901
  2. NATRILIX [Concomitant]

REACTIONS (1)
  - POSTMENOPAUSAL HAEMORRHAGE [None]
